FAERS Safety Report 5629807-X (Version None)
Quarter: 2008Q1

REPORT INFORMATION
  Report Type: 
  Country: None (occurrence: None)
  Receive Date: 20080218
  Receipt Date: 20080213
  Transmission Date: 20080703
  Serious: Yes (Death, Hospitalization)
  Sender: FDA-Public Use
  Company Number: PHEH2008US01607

PATIENT
  Age: 49 Year
  Sex: Male

DRUGS (1)
  1. GLEEVEC [Suspect]
     Indication: CHRONIC MYELOID LEUKAEMIA
     Dosage: 600MG, QD
     Route: 048
     Dates: start: 20070508, end: 20071206

REACTIONS (4)
  - BLAST CRISIS IN MYELOGENOUS LEUKAEMIA [None]
  - CEREBRAL INFARCTION [None]
  - DISEASE PROGRESSION [None]
  - FUNGAL INFECTION [None]
